FAERS Safety Report 23313973 (Version 1)
Quarter: 2023Q4

REPORT INFORMATION
  Report Type: Report from Study
  Country: FR (occurrence: FR)
  Receive Date: 20231219
  Receipt Date: 20231219
  Transmission Date: 20240110
  Serious: Yes (Hospitalization)
  Sender: FDA-Public Use
  Company Number: FR-SA-SAC20231214000873

PATIENT
  Age: 42 Year
  Sex: Male
  Weight: 86 kg

DRUGS (8)
  1. ISATUXIMAB [Suspect]
     Active Substance: ISATUXIMAB
     Indication: Plasma cell myeloma
     Dosage: 850 MG, BIM
     Route: 042
     Dates: start: 20230419, end: 20230419
  2. ISATUXIMAB [Suspect]
     Active Substance: ISATUXIMAB
     Dosage: 850 MG, BIM
     Route: 042
     Dates: start: 20231006, end: 20231006
  3. CARFILZOMIB [Suspect]
     Active Substance: CARFILZOMIB
     Indication: Plasma cell myeloma
     Dosage: UNK (D1 D8 D15 EACH CYCLE)
     Route: 042
     Dates: start: 20230419, end: 20230419
  4. CARFILZOMIB [Suspect]
     Active Substance: CARFILZOMIB
     Dosage: UNK (D1 D8 D15 EACH CYCLE)
     Route: 042
     Dates: start: 20231006, end: 20231006
  5. LENALIDOMIDE [Suspect]
     Active Substance: LENALIDOMIDE
     Indication: Plasma cell myeloma
     Dosage: 15 MG (21 DAYS/28)
     Route: 048
     Dates: start: 20230419, end: 20230419
  6. LENALIDOMIDE [Suspect]
     Active Substance: LENALIDOMIDE
     Dosage: 15 MG (21 DAYS/28)
     Route: 048
     Dates: start: 20231012, end: 20231012
  7. DEXAMETHASONE [Suspect]
     Active Substance: DEXAMETHASONE
     Indication: Plasma cell myeloma
     Dosage: 40 MG, QW
     Route: 048
     Dates: start: 20230419, end: 20230419
  8. DEXAMETHASONE [Suspect]
     Active Substance: DEXAMETHASONE
     Dosage: 40 MG, QW
     Route: 048
     Dates: start: 20231011, end: 20231011

REACTIONS (1)
  - Pneumonia pneumococcal [Recovered/Resolved]

NARRATIVE: CASE EVENT DATE: 20231113
